FAERS Safety Report 22993422 (Version 2)
Quarter: 2023Q4

REPORT INFORMATION
  Report Type: Spontaneous
  Country: AT (occurrence: AT)
  Receive Date: 20230927
  Receipt Date: 20231121
  Transmission Date: 20240109
  Serious: Yes (Hospitalization, Disabling)
  Sender: FDA-Public Use
  Company Number: AT-002147023-NVSC2023AT207895

PATIENT
  Age: 71 Year
  Sex: Male
  Weight: 77 kg

DRUGS (6)
  1. LEQVIO [Suspect]
     Active Substance: INCLISIRAN SODIUM
     Indication: Hypercholesterolaemia
     Dosage: 284 MG
     Route: 058
     Dates: start: 20230605, end: 20230908
  2. BISOPROLOL FUMARATE [Concomitant]
     Active Substance: BISOPROLOL FUMARATE
     Indication: Hypertension
     Dosage: 3.75 MG
     Route: 048
     Dates: start: 20180523
  3. AMLODIPINE BESYLATE [Concomitant]
     Active Substance: AMLODIPINE BESYLATE
     Indication: Hypertension
     Dosage: 5 MG
     Route: 048
     Dates: start: 20171017
  4. PANTOPRAZOLE SODIUM [Concomitant]
     Active Substance: PANTOPRAZOLE SODIUM
     Indication: Irritable bowel syndrome
     Dosage: 20 MG
     Route: 048
     Dates: start: 20191214
  5. MIRTAZAPINE [Concomitant]
     Active Substance: MIRTAZAPINE
     Indication: Depression
     Dosage: 30 MG
     Route: 048
     Dates: start: 20171017
  6. XARELTO [Concomitant]
     Active Substance: RIVAROXABAN
     Indication: Venous thrombosis limb
     Dosage: 10 MG
     Route: 048
     Dates: start: 20171017

REACTIONS (5)
  - Pruritus [Recovering/Resolving]
  - Abdominal pain [Recovering/Resolving]
  - Hyperaesthesia [Recovered/Resolved]
  - Chest pain [Not Recovered/Not Resolved]
  - Pain [Not Recovered/Not Resolved]

NARRATIVE: CASE EVENT DATE: 20230909
